FAERS Safety Report 5300181-1 (Version None)
Quarter: 2007Q2

REPORT INFORMATION
  Report Type: 
  Country: None (occurrence: None)
  Receive Date: 20070411
  Receipt Date: 20070328
  Transmission Date: 20071010
  Serious: Yes (Other)
  Sender: FDA-Public Use
  Company Number: 012077

PATIENT
  Age: 25 Year
  Sex: Female

DRUGS (1)
  1. CLARAVIS [Suspect]
     Dosage: ORAL
     Route: 048
     Dates: start: 20050801

REACTIONS (3)
  - DRUG EXPOSURE BEFORE PREGNANCY [None]
  - LIVE BIRTH [None]
  - UNINTENDED PREGNANCY [None]
